FAERS Safety Report 5852921-0 (Version None)
Quarter: 2008Q3

REPORT INFORMATION
  Report Type: 
  Country: None (occurrence: None)
  Receive Date: 20080821
  Receipt Date: 20080815
  Transmission Date: 20090109
  Serious: Yes (Death, Hospitalization)
  Sender: FDA-Public Use
  Company Number: FR-ASTRAZENECA-2008CG01205

PATIENT
  Age: 73 Year
  Sex: Female

DRUGS (7)
  1. NEXIUM [Suspect]
     Indication: GASTRIC ULCER
     Route: 048
     Dates: start: 20080204, end: 20080301
  2. KENZEN [Suspect]
     Indication: HYPERTENSION
     Route: 048
     Dates: start: 20080204, end: 20080331
  3. COTRIATEC [Suspect]
     Indication: HYPERTENSION
     Route: 048
     Dates: start: 20080204, end: 20080331
  4. SECTRAL [Suspect]
     Indication: HYPERTENSION
     Route: 048
     Dates: start: 20080204, end: 20080408
  5. LOXEN [Suspect]
     Indication: HYPERTENSION
     Route: 048
     Dates: start: 20080204, end: 20080331
  6. IXEL [Suspect]
     Indication: DEPRESSION
     Route: 048
     Dates: end: 20080331
  7. VITAMINE B1 B6 BAYER [Concomitant]
     Route: 048

REACTIONS (13)
  - CHOLECYSTITIS [None]
  - CHOLESTASIS [None]
  - COAGULOPATHY [None]
  - CONDITION AGGRAVATED [None]
  - CONTINUOUS HAEMODIAFILTRATION [None]
  - GALLBLADDER ABSCESS [None]
  - HAEMOTHORAX [None]
  - HEPATITIS [None]
  - INFECTION [None]
  - JAUNDICE [None]
  - PROTHROMBIN LEVEL DECREASED [None]
  - RENAL FAILURE ACUTE [None]
  - SEPTIC SHOCK [None]
